FAERS Safety Report 26218379 (Version 1)
Quarter: 2025Q4

REPORT INFORMATION
  Report Type: Spontaneous
  Country: TR (occurrence: TR)
  Receive Date: 20251231
  Receipt Date: 20251231
  Transmission Date: 20260118
  Serious: Yes (Hospitalization)
  Sender: PFIZER
  Company Number: TR-PFIZER INC-202500245568

PATIENT
  Age: 33 Year
  Sex: Female
  Weight: 65 kg

DRUGS (3)
  1. TALZENNA [Suspect]
     Active Substance: TALAZOPARIB TOSYLATE
     Indication: Triple negative breast cancer
     Dosage: 1 MG, DAILY (CAPSULE)
     Route: 048
     Dates: start: 202301
  2. TALZENNA [Suspect]
     Active Substance: TALAZOPARIB TOSYLATE
     Dosage: 0.5 MG, DAILY
     Route: 048
     Dates: start: 2023
  3. TALZENNA [Suspect]
     Active Substance: TALAZOPARIB TOSYLATE
     Dosage: 0.75 MG, DAILY (0.25 X 3 CAPSULES)
     Route: 048
     Dates: start: 2024, end: 20251229

REACTIONS (2)
  - Blood test abnormal [Recovered/Resolved]
  - Fatigue [Recovered/Resolved]

NARRATIVE: CASE EVENT DATE: 20251215
